FAERS Safety Report 24033937 (Version 2)
Quarter: 2024Q3

REPORT INFORMATION
  Report Type: Spontaneous
  Country: US (occurrence: US)
  Receive Date: 20240701
  Receipt Date: 20240801
  Transmission Date: 20241017
  Serious: No
  Sender: BRISTOL MYERS SQUIBB
  Company Number: US-BRISTOL-MYERS SQUIBB COMPANY-2024-104690

PATIENT
  Age: 81 Year
  Sex: Female
  Weight: 113.85 kg

DRUGS (1)
  1. POMALYST [Suspect]
     Active Substance: POMALIDOMIDE
     Indication: Plasma cell myeloma
     Route: 048
     Dates: start: 202405

REACTIONS (3)
  - Dyspnoea [Recovering/Resolving]
  - Joint swelling [Unknown]
  - Fatigue [Recovering/Resolving]
